FAERS Safety Report 20574188 (Version 2)
Quarter: 2022Q1

REPORT INFORMATION
  Report Type: Spontaneous
  Country: US (occurrence: US)
  Receive Date: 20220309
  Receipt Date: 20220330
  Transmission Date: 20220424
  Serious: Yes (Hospitalization)
  Sender: FDA-Public Use
  Company Number: US-PFIZER INC-202200093764

PATIENT
  Age: 55 Year
  Sex: Male

DRUGS (1)
  1. INLYTA [Suspect]
     Active Substance: AXITINIB
     Dosage: 5 MG
     Dates: start: 202201, end: 202202

REACTIONS (8)
  - Renal pain [Unknown]
  - Pain in extremity [Unknown]
  - Malaise [Unknown]
  - Liver disorder [Recovering/Resolving]
  - Dizziness [Recovered/Resolved]
  - Decreased appetite [Unknown]
  - Tongue discolouration [Unknown]
  - Glossodynia [Unknown]

NARRATIVE: CASE EVENT DATE: 20220101
